FAERS Safety Report 18524887 (Version 1)
Quarter: 2020Q4

REPORT INFORMATION
  Report Type: Spontaneous
  Country: IN (occurrence: IN)
  Receive Date: 20201119
  Receipt Date: 20201119
  Transmission Date: 20210114
  Serious: Yes (Hospitalization)
  Sender: FDA-Public Use
  Company Number: IN-JNJFOC-20201120693

PATIENT
  Age: 19 Year
  Sex: Female
  Weight: 35.8 kg

DRUGS (12)
  1. AMOXICILLIN W/CLAVULANIC ACID [Suspect]
     Active Substance: AMOXICILLIN\CLAVULANIC ACID
     Indication: TUBERCULOSIS
     Route: 065
     Dates: start: 20200911
  2. DELAMANID [Suspect]
     Active Substance: DELAMANID
     Indication: TUBERCULOSIS
     Dates: start: 20200911
  3. IMIPENEM [Suspect]
     Active Substance: IMIPENEM
     Indication: TUBERCULOSIS
     Route: 042
     Dates: start: 20200911, end: 20201103
  4. PYRIDOXINE [Concomitant]
     Active Substance: PYRIDOXINE
     Indication: PROPHYLAXIS
     Dates: start: 20200911
  5. LEVOSALBUTAMOL [Concomitant]
     Active Substance: LEVALBUTEROL
     Indication: DYSPNOEA
     Dosage: 2PUFF
     Route: 065
     Dates: start: 20200911
  6. MEROPENEM. [Suspect]
     Active Substance: MEROPENEM
     Indication: TUBERCULOSIS
     Dosage: IN 100ML NS
     Route: 042
     Dates: start: 20201103
  7. LINEZOLID. [Suspect]
     Active Substance: LINEZOLID
     Indication: TUBERCULOSIS
     Route: 065
     Dates: start: 20200911
  8. ONDEM [Concomitant]
     Indication: ANTIEMETIC SUPPORTIVE CARE
     Dates: start: 20200911
  9. BEDAQUILINE [Suspect]
     Active Substance: BEDAQUILINE
     Indication: TUBERCULOSIS
     Dates: start: 20200911
  10. OMEPRAZOLE. [Concomitant]
     Active Substance: OMEPRAZOLE
     Dates: start: 20201103
  11. METOCLOPRAMIDE. [Concomitant]
     Active Substance: METOCLOPRAMIDE
     Indication: ANTIEMETIC SUPPORTIVE CARE
     Dosage: AS NECESSARY
     Dates: start: 20200911
  12. IPRATROPIUM [Concomitant]
     Active Substance: IPRATROPIUM
     Indication: DYSPNOEA
     Dosage: 2 PUFF
     Route: 065
     Dates: start: 20200911

REACTIONS (3)
  - Chills [Recovered/Resolved]
  - Tachycardia [Recovered/Resolved]
  - Hypoxia [Recovered/Resolved]

NARRATIVE: CASE EVENT DATE: 20201103
